FAERS Safety Report 21741790 (Version 2)
Quarter: 2023Q1

REPORT INFORMATION
  Report Type: Spontaneous
  Country: DE (occurrence: DE)
  Receive Date: 20221216
  Receipt Date: 20230217
  Transmission Date: 20230417
  Serious: Yes (Hospitalization, Other)
  Sender: FDA-Public Use
  Company Number: DE-ADRED-08111-01

PATIENT
  Age: 37 Year
  Sex: Female
  Weight: 65 kg

DRUGS (6)
  1. ADALIMUMAB [Suspect]
     Active Substance: ADALIMUMAB
     Indication: Product used for unknown indication
     Dosage: 40 MG, ALLE 2 WOCHEN, FERTIGSPRITZEN
     Route: 058
  2. METHOTREXATE [Suspect]
     Active Substance: METHOTREXATE
     Indication: Product used for unknown indication
     Dosage: 12.5 MG, JEDEN FREITAG, FERTIGSPRITZEN
     Route: 030
  3. PANTOPRAZOLE SODIUM [Concomitant]
     Active Substance: PANTOPRAZOLE SODIUM
     Indication: Product used for unknown indication
     Dosage: 40 MG, 1-0-0-0, TABLETTEN
     Route: 048
  4. PREDNISOLONE [Concomitant]
     Active Substance: PREDNISOLONE
     Indication: Product used for unknown indication
     Dosage: 5 MG, 1-0-0-0, TABLETTEN
     Route: 048
  5. FOLIC ACID [Concomitant]
     Active Substance: FOLIC ACID
     Indication: Product used for unknown indication
     Dosage: 5 MG, DO, SA 1, TABLETTEN
     Route: 048
  6. PREDNISOLONE [Concomitant]
     Active Substance: PREDNISOLONE
     Indication: Product used for unknown indication
     Dosage: 5 MG, 1.5-0-0-0, TABLETTEN
     Route: 048

REACTIONS (5)
  - Diarrhoea [Unknown]
  - Peritonitis [Unknown]
  - Appendicitis [Unknown]
  - Nausea [Unknown]
  - Pain [Unknown]
